FAERS Safety Report 7220293-5 (Version None)
Quarter: 2011Q1

REPORT INFORMATION
  Report Type: 
  Country: None (occurrence: None)
  Receive Date: 20110111
  Receipt Date: 20110103
  Transmission Date: 20110831
  Serious: Yes (Other)
  Sender: FDA-Public Use
  Company Number: KR-JNJFOC-20100604074

PATIENT
  Sex: Female
  Weight: 75.9 kg

DRUGS (7)
  1. VALPROATE SODIUM [Concomitant]
     Indication: SCHIZOPHRENIA
  2. ZOLPIDEM TARTRATE [Concomitant]
     Indication: INSOMNIA
  3. ESCITALOPRAM OXALATE [Concomitant]
     Indication: DEPRESSION
  4. PROPRANOLOL HYDROCHLORIDE [Concomitant]
     Indication: PROPHYLAXIS
  5. PROCYCLIDINE HYDROCHLORIDE [Concomitant]
     Indication: PROPHYLAXIS
  6. DOMPERIDONE MALEATE [Concomitant]
     Indication: PROPHYLAXIS
  7. PALIPERIDONE PALMITATE [Suspect]
     Indication: SCHIZOPHRENIA
     Route: 030

REACTIONS (2)
  - ALANINE AMINOTRANSFERASE INCREASED [None]
  - ASPARTATE AMINOTRANSFERASE INCREASED [None]
